FAERS Safety Report 13431367 (Version 2)
Quarter: 2017Q2

REPORT INFORMATION
  Report Type: Report from Study
  Country: GB (occurrence: GB)
  Receive Date: 20170412
  Receipt Date: 20170501
  Transmission Date: 20170830
  Serious: No
  Sender: FDA-Public Use
  Company Number: GB-OTSUKA-2017_008272

PATIENT
  Age: 48 Year
  Sex: Male
  Weight: 100 kg

DRUGS (27)
  1. BLINDED *PLACEBO [Suspect]
     Active Substance: INVESTIGATIONAL PRODUCT
     Dosage: PLACEBO 0 MG ,QD (IN THE  EVENING)
     Route: 048
  2. BLINDED *PLACEBO [Suspect]
     Active Substance: INVESTIGATIONAL PRODUCT
     Dosage: 15 MG, QD (IN THE EVENING) (TITRATION PHASE)
     Route: 048
     Dates: start: 20150603, end: 20150606
  3. BLINDED TOLVAPTAN [Suspect]
     Active Substance: TOLVAPTAN
     Dosage: 60 MG, QD (IN THE  MORNING) (TITRATION PHASE)
     Route: 048
     Dates: start: 20150609, end: 20150611
  4. LANSOPRAZOLE. [Concomitant]
     Active Substance: LANSOPRAZOLE
     Indication: PROPHYLAXIS
     Dosage: 20 MG, QD
     Route: 048
     Dates: start: 20090529
  5. BLINDED *PLACEBO [Suspect]
     Active Substance: INVESTIGATIONAL PRODUCT
     Dosage: 15 MG, QD (IN THE  EVENING) (TITRATION PHASE)
     Route: 048
     Dates: start: 20150607, end: 20150609
  6. BLINDED TOLVAPTAN [Suspect]
     Active Substance: TOLVAPTAN
     Dosage: 30 MG, QD (IN THE EVENING) (TITRATION PHASE)
     Route: 048
     Dates: start: 20150609, end: 20150611
  7. BLINDED TOLVAPTAN [Suspect]
     Active Substance: TOLVAPTAN
     Dosage: 15 MG, QD (IN THE EVENING) (TITRATION PHASE)
     Route: 048
     Dates: start: 20150603, end: 20150606
  8. BLINDED *PLACEBO [Suspect]
     Active Substance: INVESTIGATIONAL PRODUCT
     Dosage: 90 MG, QD (IN THE MORNING) (TITRATION PHASE)
     Route: 048
     Dates: start: 20150612, end: 20150616
  9. BLINDED *PLACEBO [Suspect]
     Active Substance: INVESTIGATIONAL PRODUCT
     Dosage: 30 MG, QD (IN THE EVENING) (TITRATION PHASE)
     Route: 048
     Dates: start: 20150612, end: 20150616
  10. BLINDED *PLACEBO [Suspect]
     Active Substance: INVESTIGATIONAL PRODUCT
     Dosage: 30 MG, QD (IN THE EVENING) (TITRATION PHASE)
     Route: 048
     Dates: start: 20150609, end: 20150611
  11. BLINDED TOLVAPTAN [Suspect]
     Active Substance: TOLVAPTAN
     Dosage: 90 MG, QD (IN THE MORNING) (TITRATION PHASE)
     Route: 048
     Dates: start: 20150612, end: 20150616
  12. BLINDED TOLVAPTAN [Suspect]
     Active Substance: TOLVAPTAN
     Indication: CONGENITAL CYSTIC KIDNEY DISEASE
     Dosage: 90 MG, QD (IN THE MORNING) (POST RANDOMISATION)
     Route: 048
     Dates: start: 20150617, end: 20160629
  13. BLINDED TOLVAPTAN [Suspect]
     Active Substance: TOLVAPTAN
     Dosage: 30 MG, QD (IN THE  MORNING) (TITRATION PHASE)
     Route: 048
     Dates: start: 20150603, end: 20150606
  14. BLINDED *PLACEBO [Suspect]
     Active Substance: INVESTIGATIONAL PRODUCT
     Dosage: 45 MG, QD (IN THE MORNING) (TITRATION PHASE)
     Route: 048
     Dates: start: 20150607, end: 20150609
  15. BLINDED TOLVAPTAN [Suspect]
     Active Substance: TOLVAPTAN
     Dosage: 45 MG, QD (IN THE MORNING) (TITRATION PHASE)
     Route: 048
     Dates: start: 20150607, end: 20150609
  16. CARBAMAZEPIN [Concomitant]
     Active Substance: CARBAMAZEPINE
     Indication: EPILEPSY
     Dosage: 400 MG, BID
     Route: 048
     Dates: start: 2000
  17. LANSOPRAZOLE. [Concomitant]
     Active Substance: LANSOPRAZOLE
     Indication: ABDOMINAL HERNIA
  18. BLINDED TOLVAPTAN [Suspect]
     Active Substance: TOLVAPTAN
     Dosage: 30 MG, QD (IN THE EVENING) (POST RANDOMISATION)
     Route: 048
     Dates: start: 20150617, end: 20160629
  19. BLINDED *PLACEBO [Suspect]
     Active Substance: INVESTIGATIONAL PRODUCT
     Dosage: PLACEBO 0 MG ,QD (IN THE  MORNING)
     Route: 048
  20. BLINDED TOLVAPTAN [Suspect]
     Active Substance: TOLVAPTAN
     Dosage: PLACEBO 0 MG ,QD (IN THE  MORNING)
     Route: 048
  21. BLINDED TOLVAPTAN [Suspect]
     Active Substance: TOLVAPTAN
     Dosage: 15 MG, QD (IN THE  EVENING) (TITRATION PHASE)
     Route: 048
     Dates: start: 20150607, end: 20150609
  22. BLINDED *PLACEBO [Suspect]
     Active Substance: INVESTIGATIONAL PRODUCT
     Dosage: 60 MG, QD (IN THE  MORNING) (TITRATION PHASE)
     Route: 048
     Dates: start: 20150609, end: 20150611
  23. BLINDED *PLACEBO [Suspect]
     Active Substance: INVESTIGATIONAL PRODUCT
     Indication: CONGENITAL CYSTIC KIDNEY DISEASE
     Dosage: 90 MG, QD (IN THE MORNING) (POST RANDOMISATION)
     Route: 048
     Dates: start: 20150617, end: 20160629
  24. BLINDED *PLACEBO [Suspect]
     Active Substance: INVESTIGATIONAL PRODUCT
     Dosage: 30 MG, QD (IN THE EVENING) (POST RANDOMISATION)
     Route: 048
     Dates: start: 20150617, end: 20160629
  25. BLINDED TOLVAPTAN [Suspect]
     Active Substance: TOLVAPTAN
     Dosage: PLACEBO 0 MG ,QD (IN THE  EVENING)
     Route: 048
  26. BLINDED *PLACEBO [Suspect]
     Active Substance: INVESTIGATIONAL PRODUCT
     Dosage: 30 MG, QD (IN THE  MORNING) (TITRATION PHASE)
     Route: 048
     Dates: start: 20150603, end: 20150606
  27. BLINDED TOLVAPTAN [Suspect]
     Active Substance: TOLVAPTAN
     Dosage: 30 MG, QD (IN THE EVENING) (TITRATION PHASE)
     Route: 048
     Dates: start: 20150612, end: 20150616

REACTIONS (1)
  - Alanine aminotransferase increased [Recovered/Resolved]

NARRATIVE: CASE EVENT DATE: 20160208
